FAERS Safety Report 5408389-1 (Version None)
Quarter: 2007Q3

REPORT INFORMATION
  Report Type: 
  Country: None (occurrence: None)
  Receive Date: 20070808
  Receipt Date: 20070802
  Transmission Date: 20080115
  Serious: Yes (Hospitalization)
  Sender: FDA-Public Use
  Company Number: DK-ASTRAZENECA-2007SE04256

PATIENT
  Age: 22456 Day
  Sex: Male

DRUGS (4)
  1. NEXIUM [Suspect]
     Indication: GASTRIC PH DECREASED
     Route: 048
     Dates: start: 20070501, end: 20070719
  2. AKINETON [Concomitant]
     Indication: EXTRAPYRAMIDAL DISORDER
     Route: 048
  3. DOGMATIL [Concomitant]
     Indication: SCHIZOPHRENIA
     Route: 048
  4. CISORDINOL [Concomitant]
     Indication: SCHIZOPHRENIA
     Route: 048

REACTIONS (1)
  - LUPUS-LIKE SYNDROME [None]
